FAERS Safety Report 14269738 (Version 3)
Quarter: 2019Q3

REPORT INFORMATION
  Report Type: Spontaneous
  Country: US (occurrence: US)
  Receive Date: 20171211
  Receipt Date: 20190723
  Transmission Date: 20191004
  Serious: Yes (Other)
  Sender: FDA-Public Use
  Company Number: US-OTSUKA-2017_002346

PATIENT
  Age: 68 Year
  Sex: Female

DRUGS (5)
  1. REXULTI [Suspect]
     Active Substance: BREXPIPRAZOLE
     Indication: DEPRESSION
     Dosage: 1 MG, QD
     Route: 048
     Dates: start: 201611, end: 201611
  2. VIIBRYD [Concomitant]
     Active Substance: VILAZODONE HYDROCHLORIDE
     Indication: GENERALISED ANXIETY DISORDER
     Dosage: 40 MG, QD
     Route: 048
  3. REXULTI [Suspect]
     Active Substance: BREXPIPRAZOLE
     Dosage: 2 MG, QD
     Route: 048
     Dates: start: 201511, end: 201602
  4. ABILIFY [Suspect]
     Active Substance: ARIPIPRAZOLE
     Indication: DEPRESSION
     Dosage: 2.5 MG, QD
     Route: 065
     Dates: start: 20130801
  5. VIIBRYD [Concomitant]
     Active Substance: VILAZODONE HYDROCHLORIDE
     Indication: MAJOR DEPRESSION
     Dosage: 40 MG, QD
     Route: 065
     Dates: start: 20130315

REACTIONS (4)
  - Weight increased [Unknown]
  - Bruxism [Unknown]
  - Tardive dyskinesia [Recovering/Resolving]
  - Hypomania [Unknown]

NARRATIVE: CASE EVENT DATE: 201602
